FAERS Safety Report 9536551 (Version 1)
Quarter: 2013Q3

REPORT INFORMATION
  Report Type: Spontaneous
  Country: US (occurrence: None)
  Receive Date: 20130917
  Receipt Date: 20130917
  Transmission Date: 20140515
  Serious: No
  Sender: FDA-Public Use
  Company Number: None

PATIENT
  Age: 76 Year
  Sex: Male
  Weight: 86.18 kg

DRUGS (1)
  1. ARICEPT [Suspect]
     Indication: MEMORY IMPAIRMENT
     Dosage: ARICEPT ONCE DAILY TAKEN BY MOUTH
     Route: 048

REACTIONS (5)
  - Muscle spasms [None]
  - Abnormal dreams [None]
  - Nightmare [None]
  - Asthenia [None]
  - Nausea [None]
